FAERS Safety Report 17908230 (Version 1)
Quarter: 2020Q2

REPORT INFORMATION
  Report Type: Other
  Country: CA (occurrence: CA)
  Receive Date: 20200617
  Receipt Date: 20200617
  Transmission Date: 20200714
  Serious: Yes (Other)
  Sender: FDA-Public Use
  Company Number: CA-BECTON DICKINSON-2020BDN00164

PATIENT
  Age: 42 Year
  Sex: Female
  Weight: 81 kg

DRUGS (21)
  1. ORENCIA [Suspect]
     Active Substance: ABATACEPT
  2. OXYCODONE [Suspect]
     Active Substance: OXYCODONE
  3. OMEGA-3 ACIDS [Concomitant]
     Active Substance: OMEGA-3 FATTY ACIDS
  4. HYDROXYCHLOROQUINE [Concomitant]
     Active Substance: HYDROXYCHLOROQUINE
  5. REACTINE [Concomitant]
  6. OXYCODONE TEREPHTHALATE [Suspect]
     Active Substance: OXYCODONE TEREPHTHALATE
  7. PANTOPRAZOLE [Concomitant]
     Active Substance: PANTOPRAZOLE
  8. PREDNISONE. [Concomitant]
     Active Substance: PREDNISONE
  9. SIMPONI [Suspect]
     Active Substance: GOLIMUMAB
     Route: 058
  10. IBUPROFEN. [Concomitant]
     Active Substance: IBUPROFEN
  11. TYLENOL [Concomitant]
     Active Substance: ACETAMINOPHEN
  12. ZOPICLONE [Concomitant]
     Active Substance: ZOPICLONE
  13. CHLORHEXIDINE [Suspect]
     Active Substance: CHLORHEXIDINE
  14. ACTEMRA [Suspect]
     Active Substance: TOCILIZUMAB
  15. METHOTREXATE. [Suspect]
     Active Substance: METHOTREXATE
  16. VITAMIN D3 [Concomitant]
     Active Substance: CHOLECALCIFEROL
  17. ACETAMINOPHEN. [Suspect]
     Active Substance: ACETAMINOPHEN
  18. ARAVA [Suspect]
     Active Substance: LEFLUNOMIDE
  19. CIMZIA [Suspect]
     Active Substance: CERTOLIZUMAB PEGOL
     Route: 058
  20. ENBREL [Suspect]
     Active Substance: ETANERCEPT
     Route: 058
  21. D-ALPHA TOCOPHEROL [Concomitant]
     Active Substance: .ALPHA.-TOCOPHEROL, D-

REACTIONS (20)
  - Peripheral swelling [Unknown]
  - Pruritus [Unknown]
  - Vomiting [Unknown]
  - Body temperature increased [Unknown]
  - Ear pain [Unknown]
  - Headache [Unknown]
  - Respiratory disorder [Unknown]
  - Asthenia [Unknown]
  - Diarrhoea [Unknown]
  - Night sweats [Unknown]
  - Rash [Unknown]
  - Sinusitis [Unknown]
  - Back pain [Unknown]
  - Pain [Unknown]
  - Joint swelling [Unknown]
  - Lower respiratory tract infection [Unknown]
  - Urticaria [Unknown]
  - Insomnia [Unknown]
  - Abdominal pain upper [Unknown]
  - Muscle spasticity [Unknown]
